FAERS Safety Report 6781991-0 (Version None)
Quarter: 2010Q2

REPORT INFORMATION
  Report Type: 
  Country: None (occurrence: None)
  Receive Date: 20100621
  Receipt Date: 20100616
  Transmission Date: 20101027
  Serious: Yes (Hospitalization)
  Sender: FDA-Public Use
  Company Number: A0833408A

PATIENT
  Sex: Female
  Weight: 122.7 kg

DRUGS (2)
  1. AVANDAMET [Suspect]
     Dosage: 1TAB PER DAY
     Route: 048
     Dates: start: 20050622, end: 20060116
  2. AVANDIA [Suspect]
     Dosage: 4MG PER DAY
     Route: 048
     Dates: start: 20060116, end: 20070101

REACTIONS (5)
  - ATRIAL FIBRILLATION [None]
  - CARDIAC DISORDER [None]
  - CORONARY ARTERY DISEASE [None]
  - HYPERTENSION [None]
  - THROMBOSIS [None]
